FAERS Safety Report 6800817-X (Version None)
Quarter: 2010Q2

REPORT INFORMATION
  Report Type: 
  Country: None (occurrence: None)
  Receive Date: 20100629
  Receipt Date: 20070808
  Transmission Date: 20101027
  Serious: No
  Sender: FDA-Public Use
  Company Number: US-PFIZER INC-2007044742

PATIENT
  Sex: Female
  Weight: 38.56 kg

DRUGS (3)
  1. GENOTROPIN [Suspect]
     Indication: AMINO ACID LEVEL DECREASED
     Dates: start: 20010101
  2. GENOTROPIN [Suspect]
  3. ZYRTEC-D 12 HOUR [Concomitant]

REACTIONS (1)
  - DIZZINESS POSTURAL [None]
